FAERS Safety Report 12526903 (Version 1)
Quarter: 2016Q3

REPORT INFORMATION
  Report Type: Spontaneous
  Country: US (occurrence: US)
  Receive Date: 20160705
  Receipt Date: 20160705
  Transmission Date: 20161109
  Serious: No
  Sender: FDA-Public Use
  Company Number: US-PFIZER INC-2016290176

PATIENT
  Sex: Female

DRUGS (24)
  1. DOXYCYCLINE MONOHYDRATE [Suspect]
     Active Substance: DOXYCYCLINE
     Dosage: UNK
  2. CARBAMAZEPINE. [Suspect]
     Active Substance: CARBAMAZEPINE
  3. KEFLEX [Suspect]
     Active Substance: CEPHALEXIN
     Dosage: UNK
  4. SULTRIN [Suspect]
     Active Substance: SULFABENZAMIDE\SULFACETAMIDE\SULFATHIAZOLE
  5. CIPROFLOXACIN. [Suspect]
     Active Substance: CIPROFLOXACIN
     Dosage: UNK
  6. CHLORDIAZEPOXIDE HCL [Suspect]
     Active Substance: CHLORDIAZEPOXIDE HYDROCHLORIDE
  7. CLONIDINE. [Suspect]
     Active Substance: CLONIDINE
     Dosage: UNK
  8. FACTIVE [Suspect]
     Active Substance: GEMIFLOXACIN MESYLATE
     Dosage: UNK
  9. MONISTAT 1 COMBINATION PACK [Suspect]
     Active Substance: MICONAZOLE NITRATE
     Dosage: UNK
  10. METOPROLOL TARTRATE. [Suspect]
     Active Substance: METOPROLOL TARTRATE
     Dosage: UNK
  11. CODEINE [Suspect]
     Active Substance: CODEINE
  12. TIOCONAZOLE. [Suspect]
     Active Substance: TIOCONAZOLE
  13. ATROPINE SULFATE. [Suspect]
     Active Substance: ATROPINE SULFATE
  14. PHENYTOIN. [Suspect]
     Active Substance: PHENYTOIN
     Dosage: UNK
  15. MORPHINE SULFATE. [Suspect]
     Active Substance: MORPHINE SULFATE
     Dosage: UNK
  16. NORVASC [Suspect]
     Active Substance: AMLODIPINE BESYLATE
     Dosage: UNK
  17. TARKA [Suspect]
     Active Substance: TRANDOLAPRIL\VERAPAMIL HYDROCHLORIDE
  18. CEFACLOR. [Suspect]
     Active Substance: CEFACLOR
  19. DESLORATADINE. [Suspect]
     Active Substance: DESLORATADINE
     Dosage: UNK
  20. TETANUS TOXOID ADSORBED [Suspect]
     Active Substance: CLOSTRIDIUM TETANI TOXOID ANTIGEN (FORMALDEHYDE INACTIVATED)
     Dosage: UNK
  21. VALIUM [Suspect]
     Active Substance: DIAZEPAM
  22. CLINDAMYCIN HCL [Suspect]
     Active Substance: CLINDAMYCIN HYDROCHLORIDE
     Dosage: UNK
  23. VERAPAMIL HCL [Suspect]
     Active Substance: VERAPAMIL HYDROCHLORIDE
     Dosage: UNK
  24. IODINE. [Suspect]
     Active Substance: IODINE
     Dosage: UNK

REACTIONS (1)
  - Drug hypersensitivity [Unknown]
